FAERS Safety Report 23311920 (Version 2)
Quarter: 2023Q4

REPORT INFORMATION
  Report Type: Report from Study
  Country: US (occurrence: US)
  Receive Date: 20231219
  Receipt Date: 20231228
  Transmission Date: 20240109
  Serious: No
  Sender: FDA-Public Use
  Company Number: US-ALXN-A202313452

PATIENT
  Sex: Female

DRUGS (1)
  1. ULTOMIRIS [Suspect]
     Active Substance: RAVULIZUMAB-CWVZ
     Indication: Myasthenia gravis
     Dosage: UNK
     Route: 065
     Dates: start: 202304, end: 20231102

REACTIONS (6)
  - Stress [Unknown]
  - Joint stiffness [Unknown]
  - Bone disorder [Unknown]
  - Paronychia [Unknown]
  - Incorrect product administration duration [Unknown]
  - Arthralgia [Unknown]
